FAERS Safety Report 26093794 (Version 1)
Quarter: 2025Q4

REPORT INFORMATION
  Report Type: Spontaneous
  Country: EU (occurrence: EU)
  Receive Date: 20251126
  Receipt Date: 20251126
  Transmission Date: 20260119
  Serious: Yes (Disabling, Other)
  Sender: CHEPLAPHARM
  Company Number: None

PATIENT
  Age: 46 Year
  Sex: Male
  Weight: 110 kg

DRUGS (1)
  1. OLANZAPINE [Suspect]
     Active Substance: OLANZAPINE
     Indication: Psychotic disorder
     Dosage: DAILY DOSE: 30 MILLIGRAM
     Route: 030
     Dates: start: 20210613

REACTIONS (1)
  - Insomnia [Not Recovered/Not Resolved]

NARRATIVE: CASE EVENT DATE: 20210704
